FAERS Safety Report 10786239 (Version 1)
Quarter: 2015Q1

REPORT INFORMATION
  Report Type: Spontaneous
  Country: CA (occurrence: CA)
  Receive Date: 20150211
  Receipt Date: 20150211
  Transmission Date: 20150721
  Serious: Yes (Other)
  Sender: FDA-Public Use
  Company Number: CA-JNJFOC-20150120487

PATIENT

DRUGS (18)
  1. KETOCONAZOLE. [Suspect]
     Active Substance: KETOCONAZOLE
     Indication: SCEDOSPORIUM INFECTION
     Dosage: 200-2000 MG DAILY
     Route: 048
  2. KETOCONAZOLE. [Suspect]
     Active Substance: KETOCONAZOLE
     Indication: GENITAL INFECTION
     Dosage: 200-2000 MG DAILY
     Route: 048
  3. KETOCONAZOLE. [Suspect]
     Active Substance: KETOCONAZOLE
     Indication: MYCOTOXICOSIS
     Dosage: 200-2000 MG DAILY
     Route: 048
  4. KETOCONAZOLE. [Suspect]
     Active Substance: KETOCONAZOLE
     Indication: TINEA INFECTION
     Dosage: 200-2000 MG DAILY
     Route: 048
  5. KETOCONAZOLE. [Suspect]
     Active Substance: KETOCONAZOLE
     Indication: TINEA CRURIS
     Dosage: 200-2000 MG DAILY
     Route: 048
  6. KETOCONAZOLE. [Suspect]
     Active Substance: KETOCONAZOLE
     Indication: TINEA PEDIS
     Dosage: 200-2000 MG DAILY
     Route: 048
  7. KETOCONAZOLE. [Suspect]
     Active Substance: KETOCONAZOLE
     Indication: SYSTEMIC CANDIDA
     Dosage: 200-2000 MG DAILY
     Route: 048
  8. KETOCONAZOLE. [Suspect]
     Active Substance: KETOCONAZOLE
     Indication: FOLLICULITIS
     Dosage: 200-2000 MG DAILY
     Route: 048
  9. KETOCONAZOLE. [Suspect]
     Active Substance: KETOCONAZOLE
     Indication: TINEA VERSICOLOUR
     Dosage: 200-2000 MG DAILY
     Route: 048
  10. KETOCONAZOLE. [Suspect]
     Active Substance: KETOCONAZOLE
     Indication: RASH
     Dosage: 200-2000 MG DAILY
     Route: 048
  11. KETOCONAZOLE. [Suspect]
     Active Substance: KETOCONAZOLE
     Indication: SKIN LESION
     Dosage: 200-2000 MG DAILY
     Route: 048
  12. KETOCONAZOLE. [Suspect]
     Active Substance: KETOCONAZOLE
     Indication: DERMATOMYOSITIS
     Dosage: 200-2000 MG DAILY
     Route: 048
  13. KETOCONAZOLE. [Suspect]
     Active Substance: KETOCONAZOLE
     Indication: TINEA CAPITIS
     Dosage: 200-2000 MG DAILY
     Route: 048
  14. KETOCONAZOLE. [Suspect]
     Active Substance: KETOCONAZOLE
     Indication: ANTIFUNGAL PROPHYLAXIS
     Dosage: 200-2000 MG DAILY
     Route: 048
  15. KETOCONAZOLE. [Suspect]
     Active Substance: KETOCONAZOLE
     Indication: FUNGAL INFECTION
     Dosage: 200-2000 MG DAILY
     Route: 048
  16. UNKNOWN MEDICATION [Interacting]
     Active Substance: UNSPECIFIED INGREDIENT
     Indication: PRODUCT USED FOR UNKNOWN INDICATION
     Route: 065
  17. KETOCONAZOLE. [Suspect]
     Active Substance: KETOCONAZOLE
     Indication: MYCETOMA MYCOTIC
     Dosage: 200-2000 MG DAILY
     Route: 048
  18. KETOCONAZOLE. [Suspect]
     Active Substance: KETOCONAZOLE
     Indication: ONYCHOMYCOSIS
     Dosage: 200-2000 MG DAILY
     Route: 048

REACTIONS (32)
  - Rhabdomyolysis [Unknown]
  - Hepatic cirrhosis [Unknown]
  - Pruritus [Unknown]
  - Oedema [Unknown]
  - Hepatic enzyme increased [Unknown]
  - Nausea [Unknown]
  - Fatigue [Unknown]
  - Swelling face [Unknown]
  - Hepatitis [Unknown]
  - Erythema [Unknown]
  - Liver disorder [Unknown]
  - Asthenia [Unknown]
  - Renal failure [Unknown]
  - Suicidal ideation [Unknown]
  - Jaundice [Unknown]
  - Pancytopenia [Unknown]
  - Drug interaction [Unknown]
  - Vomiting [Unknown]
  - Hepatic necrosis [Unknown]
  - Hepatitis cholestatic [Unknown]
  - Urticaria [Unknown]
  - Malaise [Unknown]
  - Headache [Unknown]
  - Neurotoxicity [Unknown]
  - Abasia [Unknown]
  - Abdominal pain [Unknown]
  - Hepatic failure [Unknown]
  - Liver injury [Unknown]
  - Hepatocellular injury [Unknown]
  - Hepatotoxicity [Unknown]
  - Abdominal distension [Unknown]
  - Myalgia [Unknown]
